FAERS Safety Report 5408966-8 (Version None)
Quarter: 2007Q3

REPORT INFORMATION
  Report Type: 
  Country: None (occurrence: None)
  Receive Date: 20070806
  Receipt Date: 20070726
  Transmission Date: 20080115
  Serious: Yes (Other)
  Sender: FDA-Public Use
  Company Number: TPA2007A01414

PATIENT
  Age: 47 Year
  Sex: Female
  Weight: 108 kg

DRUGS (3)
  1. PIOGLITAZONE HCL [Suspect]
     Indication: GLUCOSE TOLERANCE IMPAIRED
     Dosage: 1 IN 1 D, PER ORAL
     Route: 048
     Dates: start: 20050912, end: 20070627
  2. SYNTHROID [Concomitant]
  3. CELEXA [Concomitant]

REACTIONS (4)
  - ANKLE FRACTURE [None]
  - FALL [None]
  - FIBULA FRACTURE [None]
  - HAND FRACTURE [None]
